FAERS Safety Report 7487282-7 (Version None)
Quarter: 2011Q2

REPORT INFORMATION
  Report Type: 
  Country: None (occurrence: None)
  Receive Date: 20110518
  Receipt Date: 20110411
  Transmission Date: 20111010
  Serious: Yes (Hospitalization, Other)
  Sender: FDA-Public Use
  Company Number: US-BAYER-201035786NA

PATIENT
  Age: 18 Year
  Sex: Female

DRUGS (5)
  1. TOPAMAX [Concomitant]
     Indication: MENSTRUATION IRREGULAR
  2. PERCOCET [Concomitant]
     Indication: PAIN
  3. DROSPIRENONE AND ETHINYL ESTRADIOL [Suspect]
     Indication: PRODUCT USED FOR UNKNOWN INDICATION
     Dosage: UNK
     Dates: start: 20090427, end: 20091231
  4. YAZ [Suspect]
     Indication: PRODUCT USED FOR UNKNOWN INDICATION
     Dosage: UNK
     Route: 048
     Dates: start: 20070822, end: 20090305
  5. YASMIN [Suspect]
     Indication: PRODUCT USED FOR UNKNOWN INDICATION

REACTIONS (4)
  - CHOLECYSTITIS ACUTE [None]
  - ADNEXA UTERI PAIN [None]
  - CHOLELITHIASIS [None]
  - CHOLECYSTECTOMY [None]
